FAERS Safety Report 9500415 (Version 1)
Quarter: 2013Q1

REPORT INFORMATION
  Report Type: Spontaneous
  Country: US (occurrence: None)
  Receive Date: 20130124
  Receipt Date: 20130124
  Transmission Date: 20140127
  Serious: Yes (Hospitalization)
  Sender: FDA-Public Use
  Company Number: 2012SIPUSA00014

PATIENT
  Age: 76 Year
  Sex: Male
  Weight: 77 kg

DRUGS (12)
  1. PROVENGE [Suspect]
     Indication: PROSTATE CANCER METASTATIC
     Dosage: 250 ML, SINGLE, INTRAVENOUS
     Route: 042
     Dates: start: 20040122, end: 20040122
  2. TEMAZEPAM (TEMAZEPAM) [Concomitant]
  3. POTASSIUM CHLORIDE POTASSIUM CHLORIDE) [Concomitant]
  4. ATORVASTATIN  (ATORVASTATIN CALCIUM) [Concomitant]
  5. AMLODIPINE (AMLODPINE) [Concomitant]
  6. SALMON OIL (SALMON OIL) [Concomitant]
  7. FUROSEMIDE (FUROSEMIDE) [Concomitant]
  8. LEUPROLIDE (LEUPROLIDE) [Concomitant]
  9. MULTIVITAMIN  AND MINERAL (ASCRBIC ACID, CALCIUM PANTOTHENATE, CALCIUM PHOSPHATE DIBASIC, COLECALCIFEROL, COPPER SULFATE, CYANOCOBALAMIN, DI-ALPHA TOCOPHERYL ACETATE, FERROUS FUMARATE, MAGNESIU, OXIDE, MANGANESE SULFATE, NICOTINAMIDE, POTASSIUM IODIDE, POTASSIUM SULFATE, PYRIDOXINE HYDROCHLORIDE, RETINOL ACETATE, RIBOFLAVIN, THIAMINE MONONITRATE, ZINC OXIDE) [Concomitant]
  10. METOPROLOL TARTRATE (METOPROLOL TARTRATE) (TABLETS) (METOPROLOL TARTRATE) [Concomitant]
  11. ASPIRIN (ACETYLSALICYLIC ACID) [Concomitant]
  12. HYDRALAZINE (HYDRALAZINE HYDROCHORIDE) [Concomitant]

REACTIONS (1)
  - Cerebrovascular accident [None]
